FAERS Safety Report 19512262 (Version 1)
Quarter: 2021Q3

REPORT INFORMATION
  Report Type: Spontaneous
  Country: US (occurrence: US)
  Receive Date: 20210709
  Receipt Date: 20210709
  Transmission Date: 20211014
  Serious: Yes (Other)
  Sender: FDA-Public Use
  Company Number: US-BAYER-2021-168505

PATIENT
  Age: 60 Year
  Sex: Female

DRUGS (3)
  1. LIDOCAINE. [Concomitant]
     Active Substance: LIDOCAINE
     Indication: PAIN
  2. ALEVEX [Suspect]
     Active Substance: CAMPHOR (SYNTHETIC)\MENTHOL
     Indication: PAIN
     Dosage: UNK
     Route: 061
     Dates: start: 20210629, end: 20210630
  3. TYLENOL [Concomitant]
     Active Substance: ACETAMINOPHEN
     Indication: PAIN

REACTIONS (6)
  - Choking [Unknown]
  - Dyspnoea [Unknown]
  - Paraesthesia [Unknown]
  - Accidental exposure to product [Unknown]
  - Application site pain [Unknown]
  - Erythema [Unknown]

NARRATIVE: CASE EVENT DATE: 20210629
